FAERS Safety Report 8517235-9 (Version None)
Quarter: 2012Q3

REPORT INFORMATION
  Report Type: 
  Country: None (occurrence: None)
  Receive Date: 20120718
  Receipt Date: 20120712
  Transmission Date: 20120928
  Serious: Yes (Hospitalization)
  Sender: FDA-Public Use
  Company Number: FR-PFIZER INC-2012167803

PATIENT
  Age: 67 Year
  Sex: Female

DRUGS (5)
  1. OXAZEPAM [Suspect]
     Dosage: 10 MG, 1X/DAY
     Route: 048
     Dates: start: 20110128
  2. IMOVANE [Suspect]
     Dosage: 7.5 MG, 1X/DAY
     Route: 048
     Dates: start: 20111124
  3. ATORVASTATIN [Suspect]
     Dosage: 20 MG, 1X/DAY
     Route: 048
     Dates: start: 20101215
  4. QUETIAPINE FUMARATE [Suspect]
     Dosage: 300 MG, 1X/DAY
     Route: 048
     Dates: start: 20111129
  5. ANAFRANIL [Suspect]
     Dosage: 150 MG, 1X/DAY
     Route: 048
     Dates: start: 20110325

REACTIONS (3)
  - HYPONATRAEMIA [None]
  - CONFUSIONAL STATE [None]
  - AGITATION [None]
